FAERS Safety Report 24760528 (Version 4)
Quarter: 2025Q1

REPORT INFORMATION
  Report Type: Report from Study
  Country: CA (occurrence: CA)
  Receive Date: 20241220
  Receipt Date: 20250211
  Transmission Date: 20250409
  Serious: Yes (Hospitalization)
  Sender: EISAI
  Company Number: CA-Eisai-EC-2024-180472

PATIENT
  Age: 73 Year
  Sex: Female
  Weight: 78.8 kg

DRUGS (5)
  1. LENVIMA [Suspect]
     Active Substance: LENVATINIB
     Indication: Endometrial cancer
     Dates: start: 20241119, end: 20241213
  2. KEYTRUDA [Suspect]
     Active Substance: PEMBROLIZUMAB
     Indication: Endometrial cancer
     Dates: start: 20241119, end: 20241119
  3. BISOPROLOL [Concomitant]
     Active Substance: BISOPROLOL
     Indication: Hypertension
  4. CANDESARTAN [Concomitant]
     Active Substance: CANDESARTAN
     Indication: Hypertension
  5. CANDESARTAN [Concomitant]
     Active Substance: CANDESARTAN

REACTIONS (6)
  - Hypertension [Recovered/Resolved]
  - Asthenia [Recovered/Resolved]
  - Urinary retention [Recovered/Resolved]
  - Haematuria [Recovered/Resolved]
  - Nausea [Recovered/Resolved]
  - Fall [Unknown]

NARRATIVE: CASE EVENT DATE: 20240101
